FAERS Safety Report 6736134-6 (Version None)
Quarter: 2010Q2

REPORT INFORMATION
  Report Type: 
  Country: None (occurrence: None)
  Receive Date: 20100521
  Receipt Date: 20100512
  Transmission Date: 20101027
  Serious: Yes (Other)
  Sender: FDA-Public Use
  Company Number: DE-SANOFI-AVENTIS-2010SA018114

PATIENT
  Age: 75 Year
  Sex: Male

DRUGS (2)
  1. MULTAQ [Suspect]
     Indication: ATRIAL FIBRILLATION
     Route: 048
     Dates: start: 20100323, end: 20100408
  2. MULTAQ [Suspect]
     Indication: TACHYARRHYTHMIA
     Route: 048
     Dates: start: 20100323, end: 20100408

REACTIONS (1)
  - RENAL FAILURE ACUTE [None]
